FAERS Safety Report 9500892 (Version 1)
Quarter: 2013Q3

REPORT INFORMATION
  Report Type: Spontaneous
  Country: GB (occurrence: GB)
  Receive Date: 20130905
  Receipt Date: 20130905
  Transmission Date: 20140515
  Serious: Yes (Other)
  Sender: FDA-Public Use
  Company Number: GB-ASTRAZENECA-2013SE65980

PATIENT
  Age: 64 Year
  Sex: Male

DRUGS (4)
  1. LISINOPRIL [Suspect]
     Indication: HYPERTENSION
     Route: 048
     Dates: start: 20130814, end: 20130814
  2. ASPIRIN [Concomitant]
  3. BENDROFLUMETHIAZIDE [Concomitant]
  4. PRAVASTATIN [Concomitant]

REACTIONS (3)
  - Pain in extremity [Recovered/Resolved]
  - Gait disturbance [Unknown]
  - Muscular weakness [Recovered/Resolved]
